FAERS Safety Report 8459913-6 (Version None)
Quarter: 2012Q2

REPORT INFORMATION
  Report Type: 
  Country: None (occurrence: None)
  Receive Date: 20120622
  Receipt Date: 20120619
  Transmission Date: 20120825
  Serious: Yes (Other)
  Sender: FDA-Public Use
  Company Number: PHHY2012FR053212

PATIENT
  Sex: Female
  Weight: 67 kg

DRUGS (8)
  1. ALLOPURINOL [Concomitant]
  2. JANUVIA [Concomitant]
  3. POTASSIUM CHLORIDE [Concomitant]
  4. DICLOFENAC SODIUM [Concomitant]
  5. METFORMIN HCL [Concomitant]
  6. PANTOPRAZOLE SODIUM [Concomitant]
  7. TASIGNA [Suspect]
     Indication: CHRONIC MYELOID LEUKAEMIA
     Dosage: 800 MG, DAILY
     Route: 048
     Dates: start: 20060330, end: 20120223
  8. LASIX [Concomitant]

REACTIONS (1)
  - PERIPHERAL ARTERIAL OCCLUSIVE DISEASE [None]
